FAERS Safety Report 22143932 (Version 1)
Quarter: 2023Q1

REPORT INFORMATION
  Report Type: Spontaneous
  Country: US (occurrence: US)
  Receive Date: 20230327
  Receipt Date: 20230327
  Transmission Date: 20230417
  Serious: Yes (Other)
  Sender: FDA-Public Use
  Company Number: US-BRISTOL-MYERS SQUIBB COMPANY-2023-039981

PATIENT
  Age: 76 Year
  Sex: Female

DRUGS (1)
  1. POMALYST [Suspect]
     Active Substance: POMALIDOMIDE
     Indication: Monoclonal gammopathy
     Dosage: 1 CAPSULE BY MOUTH EVERY DAY
     Route: 048

REACTIONS (5)
  - Productive cough [Recovering/Resolving]
  - Fall [Not Recovered/Not Resolved]
  - Nasopharyngitis [Recovering/Resolving]
  - Contusion [Recovering/Resolving]
  - Off label use [Unknown]
